FAERS Safety Report 13538343 (Version 2)
Quarter: 2017Q2

REPORT INFORMATION
  Report Type: Spontaneous
  Country: FR (occurrence: FR)
  Receive Date: 20170512
  Receipt Date: 20170621
  Transmission Date: 20170830
  Serious: Yes (Other)
  Sender: FDA-Public Use
  Company Number: FR-AMGEN-FRASP2017069577

PATIENT
  Age: 72 Year
  Sex: Female
  Weight: 148 kg

DRUGS (2)
  1. XGEVA [Suspect]
     Active Substance: DENOSUMAB
     Indication: METASTASES TO BONE
     Dosage: 120 MG, Q4WK
     Route: 058
     Dates: start: 2013, end: 20160520
  2. PAZOPANIB [Concomitant]
     Active Substance: PAZOPANIB
     Indication: METASTASES TO BONE
     Dosage: 800 MG, UNK
     Dates: start: 20140713, end: 201503

REACTIONS (1)
  - Osteonecrosis of jaw [Recovered/Resolved]

NARRATIVE: CASE EVENT DATE: 201607
